FAERS Safety Report 7956289-5 (Version None)
Quarter: 2011Q4

REPORT INFORMATION
  Report Type: 
  Country: None (occurrence: None)
  Receive Date: 20111205
  Receipt Date: 20111122
  Transmission Date: 20120403
  Serious: Yes (Hospitalization, Other)
  Sender: FDA-Public Use
  Company Number: US-ELI_LILLY_AND_COMPANY-US201004000743

PATIENT
  Sex: Female
  Weight: 40.8 kg

DRUGS (16)
  1. FORTEO [Suspect]
     Dosage: 20 UG, QD
  2. DILANTIN [Concomitant]
  3. ASPIRIN [Concomitant]
  4. METFORMIN HCL [Concomitant]
  5. PREDNISONE TAB [Concomitant]
  6. PHENYTOIN [Concomitant]
  7. FORTEO [Suspect]
     Dosage: 20 UG, DAILY (1/D)
     Route: 058
     Dates: start: 20101205
  8. REMICADE [Concomitant]
     Indication: COLITIS
     Dates: start: 20091201
  9. FOLIC ACID [Concomitant]
  10. FUROSEMIDE [Concomitant]
  11. MERCAPTOPURINE [Concomitant]
  12. LOVASTATIN [Concomitant]
  13. PRISTIQ [Concomitant]
  14. VITAMIN D [Concomitant]
  15. FORTEO [Suspect]
     Indication: OSTEOPOROSIS
     Dosage: 20 UG, DAILY (1/D)
     Route: 058
     Dates: start: 20100401
  16. SEROQUEL [Concomitant]

REACTIONS (7)
  - CROHN'S DISEASE [None]
  - HYPOPHAGIA [None]
  - GENERAL PHYSICAL HEALTH DETERIORATION [None]
  - HOSPITALISATION [None]
  - IMPAIRED HEALING [None]
  - NAUSEA [None]
  - ULCER [None]
